FAERS Safety Report 22058206 (Version 1)
Quarter: 2023Q1

REPORT INFORMATION
  Report Type: Spontaneous
  Country: PT (occurrence: PT)
  Receive Date: 20230303
  Receipt Date: 20230303
  Transmission Date: 20230418
  Serious: Yes (Other)
  Sender: FDA-Public Use
  Company Number: PT-002147023-NVSC2023PT045964

PATIENT
  Age: 33 Year

DRUGS (1)
  1. SECUKINUMAB [Suspect]
     Active Substance: SECUKINUMAB
     Indication: Ankylosing spondylitis
     Dosage: 300 MG
     Route: 065

REACTIONS (3)
  - Haematochezia [Unknown]
  - Inflammatory bowel disease [Unknown]
  - Pain [Unknown]
